FAERS Safety Report 12194679 (Version 2)
Quarter: 2016Q1

REPORT INFORMATION
  Report Type: Spontaneous
  Country: US (occurrence: US)
  Receive Date: 20160321
  Receipt Date: 20160329
  Transmission Date: 20160526
  Serious: Yes (Other)
  Sender: FDA-Public Use
  Company Number: US-GLAXOSMITHKLINE-US2016GSK038878

PATIENT
  Age: 65 Year
  Sex: Female

DRUGS (1)
  1. ADVAIR HFA [Suspect]
     Active Substance: FLUTICASONE PROPIONATE\SALMETEROL XINAFOATE
     Indication: CHRONIC OBSTRUCTIVE PULMONARY DISEASE
     Dosage: 250/50  MCG UNK, U
     Dates: start: 201511

REACTIONS (2)
  - Decreased appetite [Unknown]
  - Pulmonary resection [Unknown]

NARRATIVE: CASE EVENT DATE: 20160202
